FAERS Safety Report 4567187-1 (Version None)
Quarter: 2005Q1

REPORT INFORMATION
  Report Type: 
  Country: None (occurrence: None)
  Receive Date: 20050201
  Receipt Date: 20050126
  Transmission Date: 20050727
  Serious: Yes (Hospitalization)
  Sender: FDA-Public Use
  Company Number: BR-GLAXOSMITHKLINE-A0542892A

PATIENT
  Age: 6 Year
  Sex: Male

DRUGS (1)
  1. AMOXICILLIN AND CLAVULANATE POTASSIUM [Suspect]
     Indication: SINUSITIS
     Route: 048
     Dates: start: 20050121, end: 20050125

REACTIONS (2)
  - DRUG INEFFECTIVE [None]
  - SINUSITIS [None]
